FAERS Safety Report 8007375-5 (Version None)
Quarter: 2011Q4

REPORT INFORMATION
  Report Type: 
  Country: None (occurrence: None)
  Receive Date: 20111219
  Receipt Date: 20111213
  Transmission Date: 20120403
  Serious: Yes (Hospitalization, Other)
  Sender: FDA-Public Use
  Company Number: 2011030531

PATIENT
  Sex: Male

DRUGS (2)
  1. CARIMUNE [Suspect]
     Indication: IMMUNODEFICIENCY COMMON VARIABLE
     Dosage: (15 G 1X/MONTH INTRAVENOUS (NOT OTHERWISE SPECIFIED)), (15 G 1X/MONTH INTRAVENOUS (NOT OTHERWISE SPE
     Route: 042
     Dates: start: 20090101
  2. CARIMUNE [Suspect]
     Indication: IMMUNODEFICIENCY COMMON VARIABLE
     Dosage: (15 G 1X/MONTH INTRAVENOUS (NOT OTHERWISE SPECIFIED)), (15 G 1X/MONTH INTRAVENOUS (NOT OTHERWISE SPE
     Route: 042
     Dates: start: 20111130

REACTIONS (2)
  - ABDOMINAL DISTENSION [None]
  - PYREXIA [None]
